FAERS Safety Report 4368618-2 (Version None)
Quarter: 2004Q2

REPORT INFORMATION
  Report Type: 
  Country: None (occurrence: None)
  Receive Date: 20040528
  Receipt Date: 20040517
  Transmission Date: 20050107
  Serious: Yes (Death, Life-Threatening, Hospitalization, Other)
  Sender: FDA-Public Use
  Company Number: 1998151057-FG

PATIENT
  Age: 4 Year
  Sex: Male
  Weight: 15.4 kg

DRUGS (6)
  1. PROGRAF [Suspect]
     Indication: LIVER TRANSPLANT
     Dosage: SEE IMAGE
     Route: 048
     Dates: start: 19980501, end: 19980722
  2. PREDNISONE [Concomitant]
  3. AZATHIOPRINE [Concomitant]
  4. MYCOPHENOLATE MOFETIL [Concomitant]
  5. ANTITHYMOCYTE IMMUNOGLOBULIN [Concomitant]
  6. ACYCLOVIR [Concomitant]

REACTIONS (13)
  - DISEASE PROGRESSION [None]
  - EPSTEIN-BARR VIRUS INFECTION [None]
  - HEPATIC FAILURE [None]
  - HEPATIC NEOPLASM [None]
  - LIVER TRANSPLANT REJECTION [None]
  - LYMPHOMA [None]
  - LYMPHOPROLIFERATIVE DISORDER [None]
  - MEDIASTINUM NEOPLASM [None]
  - MULTI-ORGAN FAILURE [None]
  - NASOPHARYNGEAL DISORDER [None]
  - NODULE [None]
  - PYREXIA [None]
  - TONSILLAR NEOPLASM [None]
